FAERS Safety Report 8493886-5 (Version None)
Quarter: 2012Q3

REPORT INFORMATION
  Report Type: 
  Country: None (occurrence: None)
  Receive Date: 20120707
  Receipt Date: 20120628
  Transmission Date: 20120928
  Serious: Yes (Hospitalization, Other)
  Sender: FDA-Public Use
  Company Number: SE-AMGEN-SWECT2012036960

PATIENT
  Age: 77 Year
  Sex: Female

DRUGS (12)
  1. ACETAMINOPHEN [Concomitant]
     Indication: PAIN
     Dosage: UNK
     Dates: start: 20110511
  2. SPASMOFEN [Concomitant]
     Dosage: UNK
     Dates: start: 20110819
  3. MORPHINE [Concomitant]
  4. VITAMIN D [Concomitant]
     Dosage: UNK
     Dates: start: 20110819
  5. VOLTAREN [Concomitant]
     Dosage: UNK
     Dates: start: 20110819
  6. DENOSUMAB [Suspect]
     Indication: OSTEOPOROSIS POSTMENOPAUSAL
     Dosage: 1 ML, Q6MO
     Route: 058
     Dates: start: 20080415
  7. FUROSEMIDE [Concomitant]
     Indication: OEDEMA
     Dosage: 20 MG, UNK
     Dates: start: 20110511
  8. PRIMPERAN TAB [Concomitant]
     Dosage: UNK
     Dates: start: 20110821
  9. DIAZEPAM [Concomitant]
     Dosage: UNK
     Dates: start: 20110819
  10. MOVIPREP [Concomitant]
     Dosage: UNK
     Dates: start: 20110821
  11. CILAXORAL [Concomitant]
     Indication: LAXATIVE SUPPORTIVE CARE
     Dosage: UNK UNK, PRN
     Dates: start: 20110821
  12. METHADONE HYDROCHLORIDE [Concomitant]
     Dosage: UNK UNK, PRN
     Dates: start: 20110821

REACTIONS (1)
  - SPINAL COLUMN STENOSIS [None]
